FAERS Safety Report 7415015-9 (Version None)
Quarter: 2011Q2

REPORT INFORMATION
  Report Type: 
  Country: None (occurrence: None)
  Receive Date: 20110406
  Receipt Date: 20110321
  Transmission Date: 20111010
  Serious: Yes (Other)
  Sender: FDA-Public Use
  Company Number: 030292

PATIENT
  Age: 36 Year
  Sex: Female

DRUGS (4)
  1. ACETAMINOPHEN [Concomitant]
  2. KEPPRA [Suspect]
     Indication: BRAIN NEOPLASM MALIGNANT
     Dosage: 500 MG BID
     Dates: start: 20080201
  3. PRENATAL VITAMINS [Concomitant]
  4. FOLIC ACID [Concomitant]

REACTIONS (3)
  - DRUG EXPOSURE DURING PREGNANCY [None]
  - PREGNANCY [None]
  - PREMATURE DELIVERY [None]
